FAERS Safety Report 9756018 (Version 1)
Quarter: 2013Q4

REPORT INFORMATION
  Report Type: Spontaneous
  Country: US (occurrence: US)
  Receive Date: 20131213
  Receipt Date: 20131213
  Transmission Date: 20140711
  Serious: No
  Sender: FDA-Public Use
  Company Number: US-GLAXOSMITHKLINE-A1028047A

PATIENT
  Sex: Female

DRUGS (1)
  1. NICODERM [Suspect]
     Route: 062

REACTIONS (1)
  - Drug ineffective [Unknown]
